FAERS Safety Report 4382202-6 (Version None)
Quarter: 2004Q2

REPORT INFORMATION
  Report Type: 
  Country: None (occurrence: None)
  Receive Date: 20040615
  Receipt Date: 20040602
  Transmission Date: 20050107
  Serious: Yes (Hospitalization, Other)
  Sender: FDA-Public Use
  Company Number: 2003026889

PATIENT
  Age: 0 Day
  Sex: Male
  Weight: 4.5 kg

DRUGS (1)
  1. ZOLOFT [Suspect]
     Indication: DEPRESSION
     Dosage: 50 MG (1 IN 1 D)

REACTIONS (9)
  - BLOOD GLUCOSE DECREASED [None]
  - CAESAREAN SECTION [None]
  - DRUG EXPOSURE DURING PREGNANCY [None]
  - DRUG WITHDRAWAL SYNDROME NEONATAL [None]
  - FEELING JITTERY [None]
  - HYPERREFLEXIA [None]
  - NEONATAL DISORDER [None]
  - NEONATAL TACHYPNOEA [None]
  - REFLEXES ABNORMAL [None]
